FAERS Safety Report 8715853 (Version 3)
Quarter: 2013Q1

REPORT INFORMATION
  Report Type: Spontaneous
  Country: IE (occurrence: None)
  Receive Date: 20120725
  Receipt Date: 20130125
  Transmission Date: 20140127
  Serious: Yes (Other)
  Sender: FDA-Public Use
  Company Number: 2012MPI00277

PATIENT
  Age: 33 Year
  Sex: Male

DRUGS (4)
  1. ADCETRIS (BRENTUXIMAB VEDOTIN) INJECTION [Suspect]
     Indication: HODGKIN^S DISEASE
     Dosage: QCYCLE
     Route: 042
     Dates: start: 20110411, end: 20110728
  2. IFOSFAMIDE [Suspect]
     Indication: HODGKIN^S DISEASE
     Dosage: QCYCLE
     Dates: start: 20110412, end: 20110618
  3. GEMCITABINE [Suspect]
     Indication: HODGKIN^S DISEASE
     Dosage: QCYCLE
     Dates: start: 20110412, end: 20110618
  4. VINORELBINE [Suspect]
     Indication: HODGKIN^S DISEASE
     Dosage: QCYCLE?
     Dates: start: 20110412, end: 20110615

REACTIONS (17)
  - Amnesia [None]
  - Gait disturbance [None]
  - Snoring [None]
  - Somnolence [None]
  - Fatigue [None]
  - Drug ineffective [None]
  - Peripheral sensorimotor neuropathy [None]
  - Weight increased [None]
  - Sleep apnoea syndrome [None]
  - Tinnitus [None]
  - Herpes zoster [None]
  - Costochondritis [None]
  - Varicose vein [None]
  - Headache [None]
  - Decreased appetite [None]
  - Cough [None]
  - Pyrexia [None]
